FAERS Safety Report 9793338 (Version 2)
Quarter: 2014Q1

REPORT INFORMATION
  Report Type: Report from Study
  Country: US (occurrence: US)
  Receive Date: 20140102
  Receipt Date: 20140130
  Transmission Date: 20141002
  Serious: Yes (Hospitalization)
  Sender: FDA-Public Use
  Company Number: US-JNJFOC-20131217380

PATIENT
  Age: 48 Year
  Sex: Male
  Weight: 83.1 kg

DRUGS (3)
  1. IBRUTINIB [Suspect]
     Indication: B-CELL LYMPHOMA
     Route: 048
     Dates: start: 20131004, end: 20131227
  2. ECONAZOLE NITRATE [Concomitant]
     Indication: ONYCHOMYCOSIS
     Route: 061
     Dates: start: 20130620
  3. AMOXICILLIN [Concomitant]
     Indication: SINUSITIS
     Route: 048
     Dates: start: 20131129, end: 20131208

REACTIONS (2)
  - Metastases to meninges [Recovered/Resolved]
  - Anaemia [Recovered/Resolved]
